FAERS Safety Report 16756833 (Version 1)
Quarter: 2019Q3

REPORT INFORMATION
  Report Type: Spontaneous
  Country: US (occurrence: US)
  Receive Date: 20190829
  Receipt Date: 20190829
  Transmission Date: 20191005
  Serious: Yes (Other)
  Sender: FDA-Public Use
  Company Number: US-JNJFOC-20190827288

PATIENT
  Age: 67 Year
  Sex: Male
  Weight: 83.08 kg

DRUGS (3)
  1. ASPIRIN                            /00002701/ [Concomitant]
     Active Substance: ASPIRIN
     Indication: PRODUCT USED FOR UNKNOWN INDICATION
  2. AMLODIPINE [Concomitant]
     Active Substance: AMLODIPINE BESYLATE
     Indication: HYPERTENSION
  3. ERDAFITINIB. [Suspect]
     Active Substance: ERDAFITINIB
     Indication: SOFT TISSUE SARCOMA
     Dosage: 4 MG 2 TABS PER DAY
     Route: 048
     Dates: start: 20190730, end: 20190819

REACTIONS (1)
  - Retinal detachment [Not Recovered/Not Resolved]

NARRATIVE: CASE EVENT DATE: 20190819
